FAERS Safety Report 23034427 (Version 1)
Quarter: 2023Q4

REPORT INFORMATION
  Report Type: Spontaneous
  Country: CN (occurrence: CN)
  Receive Date: 20231005
  Receipt Date: 20231005
  Transmission Date: 20240110
  Serious: Yes (Life-Threatening, Other)
  Sender: FDA-Public Use
  Company Number: CN-SUN PHARMACEUTICAL INDUSTRIES LTD-2023R1-410593

PATIENT
  Age: 69 Year
  Sex: Female

DRUGS (3)
  1. CARBOPLATIN [Suspect]
     Active Substance: CARBOPLATIN
     Indication: Radiochemotherapy
     Dosage: 500 MILLIGRAM/1 H
     Route: 042
  2. CISPLATIN [Suspect]
     Active Substance: CISPLATIN
     Indication: Radiochemotherapy
     Dosage: 450 MILLIGRAM/ 1H
     Route: 065
  3. DOCETAXEL [Suspect]
     Active Substance: DOCETAXEL
     Indication: Radiochemotherapy
     Dosage: 100 MILLIGRAM/3H
     Route: 042

REACTIONS (1)
  - Myelosuppression [Unknown]
